FAERS Safety Report 8836354 (Version 1)
Quarter: 2012Q4

REPORT INFORMATION
  Report Type: 
  Country: US (occurrence: US)
  Receive Date: 20121011
  Receipt Date: 20121011
  Transmission Date: 20130627
  Serious: No
  Sender: FDA-Public Use
  Company Number: US-NOVEN-12US004930

PATIENT
  Age: 94 Year
  Sex: Female

DRUGS (6)
  1. FENTANYL [Suspect]
     Indication: ARTHRALGIA
     Dosage: 25 ug/hr, UNK
     Route: 062
     Dates: end: 20120709
  2. MELOXICAM [Concomitant]
  3. THYROXINE [Concomitant]
  4. PLAVIX [Concomitant]
  5. LEXAPRO [Concomitant]
  6. FUROSEMIDE [Concomitant]

REACTIONS (1)
  - Swelling [Not Recovered/Not Resolved]
